FAERS Safety Report 9272191 (Version 1)
Quarter: 2013Q2

REPORT INFORMATION
  Report Type: Spontaneous
  Country: US (occurrence: US)
  Receive Date: 20130506
  Receipt Date: 20130506
  Transmission Date: 20140414
  Serious: No
  Sender: FDA-Public Use
  Company Number: US-ASTRAZENECA-2013SE21763

PATIENT
  Age: 58 Year
  Sex: Male

DRUGS (4)
  1. PRILOSEC OTC [Suspect]
     Route: 048
     Dates: start: 20130330, end: 20130330
  2. INSULIN [Concomitant]
     Dosage: UNKNOWN
  3. ENALAPRIL [Concomitant]
     Dosage: UNKNOWN
  4. ASPIRIN [Concomitant]
     Dosage: UNKNOWN

REACTIONS (8)
  - Eye pain [Unknown]
  - Pain [Recovered/Resolved]
  - Facial pain [Recovered/Resolved]
  - Abdominal pain upper [Not Recovered/Not Resolved]
  - Sensory disturbance [Recovered/Resolved]
  - Abdominal discomfort [Not Recovered/Not Resolved]
  - Dysgeusia [Recovered/Resolved]
  - Intentional drug misuse [Unknown]
